FAERS Safety Report 9120013 (Version 1)
Quarter: 2013Q1

REPORT INFORMATION
  Report Type: Spontaneous
  Country: FR (occurrence: None)
  Receive Date: 20130130
  Receipt Date: 20130130
  Transmission Date: 20140127
  Serious: Yes (Hospitalization)
  Sender: FDA-Public Use
  Company Number: DSM-2013-00105

PATIENT
  Age: 46 Year
  Sex: Female

DRUGS (6)
  1. ALTEIS (OLMESARTAN MEDOXOMIL) (TABLET) (OLMESARTAN MEDOXOMIL) [Suspect]
     Indication: PRODUCT USED FOR UNKNOWN INDICATION
     Route: 048
  2. KIVEXA (LAMIVUDINE, ABACAVIR SULFATE) (LAMIVUDINE, ABACAVIR SULFATE) [Suspect]
     Indication: HIV INFECTION
     Route: 048
  3. VIRAMUNE (NEVIRAPINE) (NEVIRAPINE) [Suspect]
     Indication: HIV INFECTION
     Route: 048
     Dates: start: 1999
  4. FENOFIBRATE (FENOFIBRATE) (FENOFIBRATE) [Suspect]
     Indication: PRODUCT USED FOR UNKNOWN INDICATION
     Route: 048
  5. ZANIDIP (LERCANIDIPINE HYDROCHLORIDE) (LERCANIDIPINE [Suspect]
     Indication: PRODUCT USED FOR UNKNOWN INDICATION
     Route: 048
  6. PROZAC (FLUOXETINE HYDROCHLORIDE) (FLUOXETINE HYDROCHLORIDE) [Suspect]
     Indication: PRODUCT USED FOR UNKNOWN INDICATION
     Route: 048

REACTIONS (4)
  - Pulmonary embolism [None]
  - Pulmonary artery thrombosis [None]
  - Sinus tachycardia [None]
  - Electrocardiogram repolarisation abnormality [None]
